FAERS Safety Report 4956472-7 (Version None)
Quarter: 2006Q1

REPORT INFORMATION
  Report Type: 
  Country: None (occurrence: None)
  Receive Date: 20060328
  Receipt Date: 20060328
  Transmission Date: 20060701
  Serious: Yes (Other)
  Sender: FDA-Public Use
  Company Number: None

PATIENT
  Age: 64 Year
  Sex: Female
  Weight: 75 kg

DRUGS (2)
  1. CARIMUNE [Suspect]
     Indication: MYASTHENIA GRAVIS
     Dosage: 81 GM Q4 WKS IV
     Route: 042
     Dates: start: 20060317
  2. CARIMUNE [Suspect]

REACTIONS (3)
  - INFUSION RELATED REACTION [None]
  - RASH [None]
  - URTICARIA [None]
